FAERS Safety Report 6999359-0 (Version None)
Quarter: 2010Q3

REPORT INFORMATION
  Report Type: 
  Country: None (occurrence: None)
  Receive Date: 20100920
  Receipt Date: 20100727
  Transmission Date: 20110219
  Serious: No
  Sender: FDA-Public Use
  Company Number: US-ASTRAZENECA-2010SE35082

PATIENT
  Age: 67 Year
  Sex: Female
  Weight: 47.6 kg

DRUGS (2)
  1. SEROQUEL XR [Suspect]
     Route: 048
     Dates: start: 20100701, end: 20100701
  2. SEROQUEL XR [Suspect]
     Route: 048
     Dates: start: 20100701

REACTIONS (3)
  - HOT FLUSH [None]
  - POOR QUALITY SLEEP [None]
  - RESTLESS LEGS SYNDROME [None]
